FAERS Safety Report 7761402-9 (Version None)
Quarter: 2011Q3

REPORT INFORMATION
  Report Type: 
  Country: None (occurrence: None)
  Receive Date: 20110920
  Receipt Date: 20110914
  Transmission Date: 20111222
  Serious: No
  Sender: FDA-Public Use
  Company Number: US-PFIZER INC-2011178841

PATIENT
  Sex: Female
  Weight: 79.365 kg

DRUGS (10)
  1. BENAZEPRIL HYDROCHLORIDE [Concomitant]
     Indication: HYPERTENSION
     Dosage: 40 MG, DAILY
     Route: 048
  2. LOVAZA [Concomitant]
     Indication: BLOOD TRIGLYCERIDES INCREASED
     Dosage: 2 G, 2X/DAY
     Route: 048
     Dates: start: 20110101
  3. METFORMIN HYDROCHLORIDE [Concomitant]
     Indication: TYPE 2 DIABETES MELLITUS
     Dosage: 1000 MG, 2X/DAY
     Route: 048
  4. LIPITOR [Suspect]
     Indication: HYPERLIPIDAEMIA
     Dosage: 40 MG, DAILY
     Route: 048
     Dates: start: 20110727, end: 20110804
  5. AMLODIPINE [Concomitant]
     Indication: HYPERTENSION
     Dosage: 20 MG, DAILY
     Dates: start: 20110201
  6. TRAZODONE HYDROCHLORIDE [Concomitant]
     Indication: INSOMNIA
     Dosage: 50 MG DAILY AT BEDTIME
     Route: 048
     Dates: start: 20110401
  7. VITAMIN D2 [Concomitant]
     Indication: VITAMIN D DECREASED
     Dosage: 50000 MG, WEEKLY
     Route: 048
  8. PRISTIQ [Concomitant]
     Indication: DEPRESSION
     Dosage: 50 MG, DAILY
     Route: 048
     Dates: start: 20110301
  9. GLIPIZIDE [Concomitant]
     Indication: TYPE 2 DIABETES MELLITUS
     Dosage: 10 MG, DAILY
     Route: 048
     Dates: start: 20110201
  10. TRAZODONE HYDROCHLORIDE [Concomitant]
     Indication: ANXIETY

REACTIONS (3)
  - ONYCHALGIA [None]
  - PAIN IN EXTREMITY [None]
  - PAIN [None]
